FAERS Safety Report 8282453-4 (Version None)
Quarter: 2012Q2

REPORT INFORMATION
  Report Type: 
  Country: None (occurrence: None)
  Receive Date: 20120413
  Receipt Date: 20120406
  Transmission Date: 20120825
  Serious: Yes (Death)
  Sender: FDA-Public Use
  Company Number: JP-PFIZER INC-2009184699

PATIENT
  Age: 27 Month
  Sex: Female
  Weight: 2.7 kg

DRUGS (11)
  1. HOKUNALIN [Concomitant]
     Dosage: UNK
     Route: 048
     Dates: end: 20090220
  2. BISOLVON [Concomitant]
     Dosage: 1 MG, UNK
     Route: 048
     Dates: end: 20090220
  3. AMBROXOL [Concomitant]
     Dosage: 1.5 MG, UNK
     Route: 048
     Dates: end: 20090220
  4. SILDENAFIL CITRATE [Suspect]
     Indication: PULMONARY HYPERTENSION
     Dosage: 2.5 MG, 4X/DAY
     Route: 048
     Dates: start: 20070525
  5. TRACLEER [Concomitant]
     Indication: PULMONARY HYPERTENSION
     Dosage: 8 MG, UNK
     Route: 048
     Dates: start: 20070517, end: 20090225
  6. ERYTHROCIN [Concomitant]
     Dosage: 20 MG, UNK
     Route: 048
     Dates: end: 20090220
  7. ALDACTONE [Concomitant]
     Dosage: 2 MG, UNK
     Route: 048
     Dates: end: 20090225
  8. THEO-DUR [Concomitant]
     Dosage: 20 MG, UNK
     Route: 048
     Dates: end: 20090220
  9. DORNER [Concomitant]
     Indication: PULMONARY HYPERTENSION
     Dosage: 5 MG, UNK
     Route: 048
     Dates: start: 20070706, end: 20090225
  10. CORTRIL [Concomitant]
     Indication: ADRENAL INSUFFICIENCY
     Dosage: 3.5 MG, UNK
     Route: 048
     Dates: end: 20090225
  11. FUROSEMIDE [Concomitant]
     Dosage: 2 MG, UNK
     Route: 048
     Dates: end: 20090225

REACTIONS (3)
  - HEPATITIS [None]
  - CYTOMEGALOVIRUS INFECTION [None]
  - DISSEMINATED INTRAVASCULAR COAGULATION [None]
